FAERS Safety Report 6679163-3 (Version None)
Quarter: 2010Q2

REPORT INFORMATION
  Report Type: 
  Country: None (occurrence: None)
  Receive Date: 20100402
  Receipt Date: 20091116
  Transmission Date: 20101027
  Serious: Yes (Other)
  Sender: FDA-Public Use
  Company Number: 2009298349

PATIENT
  Sex: Female

DRUGS (1)
  1. ARGATROBAN [Suspect]
     Indication: HEPARIN-INDUCED THROMBOCYTOPENIA
     Dosage: 0.5 UG/KG, INTRAVENOUS
     Route: 042

REACTIONS (1)
  - INTERNATIONAL NORMALISED RATIO INCREASED [None]
